FAERS Safety Report 7627315-8 (Version None)
Quarter: 2011Q3

REPORT INFORMATION
  Report Type: 
  Country: None (occurrence: None)
  Receive Date: 20110721
  Receipt Date: 20110715
  Transmission Date: 20111222
  Serious: Yes (Hospitalization, Other)
  Sender: FDA-Public Use
  Company Number: JP-ABBOTT-11P-087-0724084-00

PATIENT
  Sex: Female
  Weight: 32 kg

DRUGS (8)
  1. TACROLIMUS [Suspect]
  2. RALOXIFENE HYDROCHLORIDE [Concomitant]
     Indication: PRODUCT USED FOR UNKNOWN INDICATION
     Route: 048
  3. HUMIRA [Suspect]
     Dates: start: 20101004, end: 20110301
  4. LEVOFLOXACIN HYDRATE [Concomitant]
     Indication: PRODUCT USED FOR UNKNOWN INDICATION
     Route: 048
  5. HUMIRA [Suspect]
     Indication: RHEUMATOID ARTHRITIS
     Route: 058
     Dates: start: 20081226, end: 20100528
  6. TACROLIMUS [Suspect]
     Indication: RHEUMATOID ARTHRITIS
     Route: 048
     Dates: start: 20101004
  7. PREDNISOLONE [Suspect]
     Indication: RHEUMATOID ARTHRITIS
     Dosage: 2.5 MILLIGRAM DAILY
     Route: 048
  8. DICLOFENAC SODIUM [Concomitant]
     Indication: PRODUCT USED FOR UNKNOWN INDICATION
     Route: 054

REACTIONS (6)
  - KYPHOSIS [None]
  - GENERAL PHYSICAL HEALTH DETERIORATION [None]
  - STAPHYLOCOCCAL INFECTION [None]
  - SPINAL COMPRESSION FRACTURE [None]
  - OSTEOPOROTIC FRACTURE [None]
  - WOUND INFECTION [None]
